FAERS Safety Report 4840646-X (Version None)
Quarter: 2005Q4

REPORT INFORMATION
  Report Type: 
  Country: None (occurrence: None)
  Receive Date: 20051129
  Receipt Date: 20051129
  Transmission Date: 20060501
  Serious: No
  Sender: FDA-Public Use
  Company Number: None

PATIENT
  Age: 58 Year
  Sex: Male

DRUGS (1)
  1. BUTALBITAL /APAP/CAFFEINE TABS 3416; 50/325 MIKART (WATSON) [Suspect]
     Indication: MIGRAINE
     Dosage: TAKE 1 TABLET EVERY 4 HOURS AS NEEDED FOR MIGRAINE
     Dates: start: 20050916

REACTIONS (1)
  - ANXIETY [None]
